FAERS Safety Report 6060944-4 (Version None)
Quarter: 2009Q1

REPORT INFORMATION
  Report Type: 
  Country: None (occurrence: None)
  Receive Date: 20090129
  Receipt Date: 20090129
  Transmission Date: 20090719
  Serious: No
  Sender: FDA-Public Use
  Company Number: None

PATIENT
  Sex: Male
  Weight: 71.85 kg

DRUGS (4)
  1. FLUOROURACIL [Suspect]
     Dosage: 394 MG
  2. CISPLATIN [Suspect]
     Dosage: 118 MG
  3. ERBITUX [Suspect]
     Dosage: 492 MG
  4. ELLENCE [Suspect]
     Dosage: 98 MG

REACTIONS (3)
  - BLOOD PRESSURE IMMEASURABLE [None]
  - RESPIRATORY ARREST [None]
  - UNRESPONSIVE TO STIMULI [None]
